FAERS Safety Report 7792741-3 (Version None)
Quarter: 2011Q4

REPORT INFORMATION
  Report Type: 
  Country: None (occurrence: None)
  Receive Date: 20111003
  Receipt Date: 20110926
  Transmission Date: 20120403
  Serious: Yes (Hospitalization)
  Sender: FDA-Public Use
  Company Number: AU-ROXANE LABORATORIES, INC.-2011-RO-01365RO

PATIENT
  Age: 58 Year
  Sex: Female

DRUGS (4)
  1. PACLITAXEL [Suspect]
     Indication: ENDOMETRIAL CANCER STAGE III
     Route: 042
  2. DEXAMETHASONE [Suspect]
     Indication: PREMEDICATION
     Dosage: 40 MG
  3. DEXAMETHASONE [Suspect]
     Indication: PROPHYLAXIS OF NAUSEA AND VOMITING
     Dosage: 4 MG
  4. CARBOPLATIN [Suspect]
     Indication: ENDOMETRIAL CANCER STAGE III
     Dosage: 600 MG
     Route: 042

REACTIONS (1)
  - PYOMYOSITIS [None]
